FAERS Safety Report 8143960-8 (Version None)
Quarter: 2012Q1

REPORT INFORMATION
  Report Type: 
  Country: None (occurrence: None)
  Receive Date: 20120217
  Receipt Date: 20120217
  Transmission Date: 20120608
  Serious: No
  Sender: FDA-Public Use
  Company Number: None

PATIENT
  Sex: Female
  Weight: 70.306 kg

DRUGS (1)
  1. ADDERALL 5 [Suspect]
     Indication: CHRONIC FATIGUE SYNDROME
     Dosage: 10 MG
     Route: 048
     Dates: start: 20111208, end: 20120215

REACTIONS (4)
  - AGITATION [None]
  - FATIGUE [None]
  - PRODUCT SUBSTITUTION ISSUE [None]
  - DRUG INEFFECTIVE [None]
